FAERS Safety Report 21486636 (Version 3)
Quarter: 2022Q4

REPORT INFORMATION
  Report Type: Spontaneous
  Country: CO (occurrence: CO)
  Receive Date: 20221020
  Receipt Date: 20221115
  Transmission Date: 20230113
  Serious: No
  Sender: FDA-Public Use
  Company Number: CO-PFIZER INC-PV202200071132

PATIENT

DRUGS (1)
  1. GENOTROPIN [Suspect]
     Active Substance: SOMATROPIN
     Dosage: 1.0 MG
     Route: 058

REACTIONS (2)
  - Device mechanical issue [Unknown]
  - Wrong technique in device usage process [Unknown]
